FAERS Safety Report 11140126 (Version 1)
Quarter: 2015Q2

REPORT INFORMATION
  Report Type: Spontaneous
  Country: US (occurrence: US)
  Receive Date: 20150527
  Receipt Date: 20150527
  Transmission Date: 20150821
  Serious: Yes (Hospitalization)
  Sender: FDA-Public Use
  Company Number: US-BAYER-2015-261049

PATIENT
  Age: 42 Year
  Sex: Female

DRUGS (1)
  1. BRONKAID [Suspect]
     Active Substance: EPHEDRINE SULFATE\GUAIFENESIN
     Indication: SINUS CONGESTION
     Dosage: UNK

REACTIONS (2)
  - Drug abuse [None]
  - Nephrolithiasis [None]
